FAERS Safety Report 17701208 (Version 2)
Quarter: 2020Q4

REPORT INFORMATION
  Report Type: Spontaneous
  Country: ES (occurrence: ES)
  Receive Date: 20200424
  Receipt Date: 20201009
  Transmission Date: 20210113
  Serious: Yes (Hospitalization, Other)
  Sender: FDA-Public Use
  Company Number: ES-AUROBINDO-AUR-APL-2020-020172

PATIENT
  Age: 39 Year
  Sex: Female

DRUGS (4)
  1. MEPIVACAINA [Suspect]
     Active Substance: MEPIVACAINE HYDROCHLORIDE
     Indication: DENTAL OPERATION
     Dosage: UNK, SP
     Route: 065
     Dates: start: 20180625
  2. NOLOTIL (DEXTROPROPOXYPHENE/METAMIZOLE MAGNESIUM) [Suspect]
     Active Substance: METAMIZOLE\PROPOXYPHENE
     Indication: PAIN
     Dosage: 6 GRAM TOTAL  3 BLISTERS IN THAT PERIOD
     Route: 065
     Dates: start: 20190206, end: 20190210
  3. IBUPROFEN. [Suspect]
     Active Substance: IBUPROFEN
     Indication: PAIN
     Dosage: 600 MILLIGRAM, EVERY 8 HOURS
     Route: 048
     Dates: start: 20190206, end: 20190210
  4. LIDOCAINE. [Suspect]
     Active Substance: LIDOCAINE
     Indication: PRODUCT USED FOR UNKNOWN INDICATION
     Dosage: UNK
     Route: 065
     Dates: start: 20180709

REACTIONS (2)
  - Hepatitis acute [Recovered/Resolved]
  - Hepatic failure [Recovered/Resolved]

NARRATIVE: CASE EVENT DATE: 20180720
